FAERS Safety Report 5347588-4 (Version None)
Quarter: 2007Q2

REPORT INFORMATION
  Report Type: 
  Country: None (occurrence: None)
  Receive Date: 20070606
  Receipt Date: 20070531
  Transmission Date: 20071010
  Serious: Yes (Disabling)
  Sender: FDA-Public Use
  Company Number: CA-ASTRAZENECA-2007UW11025

PATIENT
  Age: 65 Year
  Sex: Male
  Weight: 83.6 kg

DRUGS (6)
  1. PULMICORT [Suspect]
     Indication: LUNG INFECTION
     Route: 055
     Dates: start: 20070201
  2. NEXIUM [Suspect]
     Route: 048
  3. DIOVAN [Concomitant]
     Indication: BLOOD PRESSURE
  4. LIPITOR [Concomitant]
  5. APO-FUROSEMIDE [Concomitant]
  6. DILTIAZEM [Concomitant]

REACTIONS (4)
  - AGEUSIA [None]
  - ANOSMIA [None]
  - DYSGEUSIA [None]
  - ORAL FUNGAL INFECTION [None]
